FAERS Safety Report 6699148-0 (Version None)
Quarter: 2010Q2

REPORT INFORMATION
  Report Type: 
  Country: None (occurrence: None)
  Receive Date: 20100427
  Receipt Date: 20100420
  Transmission Date: 20101027
  Serious: Yes (Other)
  Sender: FDA-Public Use
  Company Number: JP-ASTRAZENECA-2010SE18194

PATIENT
  Age: 56 Year
  Sex: Female
  Weight: 29 kg

DRUGS (2)
  1. XYLOCAINE [Suspect]
     Indication: LOCAL ANAESTHESIA
     Route: 049
     Dates: start: 20100406, end: 20100406
  2. OPIATO [Concomitant]
     Indication: PREMEDICATION
     Route: 030
     Dates: start: 20100406, end: 20100406

REACTIONS (3)
  - ANXIETY [None]
  - CONVULSION [None]
  - DEPRESSED LEVEL OF CONSCIOUSNESS [None]
